FAERS Safety Report 5952793-X (Version None)
Quarter: 2008Q4

REPORT INFORMATION
  Report Type: 
  Country: None (occurrence: None)
  Receive Date: 20081114
  Receipt Date: 20081107
  Transmission Date: 20090506
  Serious: Yes (Other)
  Sender: FDA-Public Use
  Company Number: US-JNJFOC-20081102181

PATIENT
  Sex: Female
  Weight: 77.11 kg

DRUGS (13)
  1. FENTANYL TRANSDERMAL SYSTEM [Suspect]
     Indication: FIBROMYALGIA
     Route: 062
  2. FENTANYL TRANSDERMAL SYSTEM [Suspect]
     Indication: PAIN
     Route: 062
  3. FENTANYL TRANSDERMAL SYSTEM [Suspect]
     Indication: RADICULAR PAIN
     Route: 062
  4. ATENOLOL [Concomitant]
     Indication: BLOOD PRESSURE
     Route: 048
  5. NEURONTIN [Concomitant]
     Indication: NEURALGIA
     Route: 048
  6. HYDROCHLOROTHIAZIDE [Concomitant]
     Indication: DIURETIC THERAPY
     Route: 048
  7. ALIGN [Concomitant]
     Indication: GASTRIC DISORDER
     Route: 048
  8. PROTONIX [Concomitant]
     Indication: GASTROOESOPHAGEAL REFLUX DISEASE
     Route: 048
  9. HYDROMOX [Concomitant]
     Indication: GASTRITIS
     Route: 048
  10. OXYCONTIN [Concomitant]
     Indication: PAIN
     Route: 048
  11. LORTAB [Concomitant]
     Indication: PAIN
     Dosage: 7.5MG-500MG/TABLET/ONE AS NEEDED 2 TO 4 TIMES A DAY/ORAL
     Route: 048
  12. UNKNOWN MEDICATION [Concomitant]
     Indication: BLADDER DISORDER
     Route: 048
  13. MOTRIN [Concomitant]
     Indication: PAIN
     Dosage: 600MG-800MG/TABLET/200MG/3 OR 4 TABLETS BID AS NEEDED/ORAL
     Route: 048

REACTIONS (11)
  - BLOOD PRESSURE INCREASED [None]
  - DRUG INEFFECTIVE [None]
  - EYE IRRITATION [None]
  - INSOMNIA [None]
  - OCULAR HYPERAEMIA [None]
  - ODYNOPHAGIA [None]
  - POLLAKIURIA [None]
  - PRODUCT QUALITY ISSUE [None]
  - TONGUE BLISTERING [None]
  - TONGUE DISORDER [None]
  - URINARY INCONTINENCE [None]
